FAERS Safety Report 8255385-5 (Version None)
Quarter: 2012Q2

REPORT INFORMATION
  Report Type: 
  Country: None (occurrence: None)
  Receive Date: 20120403
  Receipt Date: 20120323
  Transmission Date: 20120825
  Serious: Yes (Other)
  Sender: FDA-Public Use
  Company Number: DK-SANOFI-AVENTIS-2011SA084073

PATIENT
  Age: 75 Year
  Sex: Female

DRUGS (3)
  1. LOSARTAN POTASSIUM AND HYDROCHLOROTHIAZIDE [Concomitant]
     Indication: HYPERTENSION
     Route: 065
     Dates: end: 20111118
  2. METFORMIN HCL [Concomitant]
     Route: 065
     Dates: end: 20111015
  3. MULTAQ [Suspect]
     Indication: ATRIAL FIBRILLATION
     Dosage: STYRKE: 400 MG
     Route: 048
     Dates: start: 20110923, end: 20111015

REACTIONS (2)
  - BLOOD CREATININE INCREASED [None]
  - RENAL FAILURE [None]
